FAERS Safety Report 14578175 (Version 1)
Quarter: 2018Q1

REPORT INFORMATION
  Report Type: Report from Study
  Country: FR (occurrence: FR)
  Receive Date: 20180227
  Receipt Date: 20180227
  Transmission Date: 20180509
  Serious: Yes (Other)
  Sender: FDA-Public Use
  Company Number: FR-BAUSCH-BL-2018-005346

PATIENT
  Age: 61 Year
  Sex: Female

DRUGS (6)
  1. 5-FU [Suspect]
     Active Substance: FLUOROURACIL
     Route: 065
     Dates: start: 20170328
  2. OXALIPLATIN. [Suspect]
     Active Substance: OXALIPLATIN
     Route: 051
     Dates: start: 20170503, end: 20171212
  3. 5-FU [Suspect]
     Active Substance: FLUOROURACIL
     Indication: COLORECTAL CANCER METASTATIC
     Route: 065
     Dates: start: 20170331
  4. OXALIPLATIN. [Suspect]
     Active Substance: OXALIPLATIN
     Indication: COLORECTAL CANCER METASTATIC
     Route: 051
     Dates: start: 20170331
  5. CETUXIMAB. [Suspect]
     Active Substance: CETUXIMAB
     Indication: COLORECTAL CANCER METASTATIC
     Route: 042
     Dates: start: 20170331, end: 20171212
  6. 5-FU [Suspect]
     Active Substance: FLUOROURACIL
     Route: 065
     Dates: start: 20171212, end: 20171212

REACTIONS (2)
  - Neutrophil count decreased [Recovered/Resolved]
  - Off label use [Unknown]

NARRATIVE: CASE EVENT DATE: 20171117
